FAERS Safety Report 6994805-0 (Version None)
Quarter: 2010Q3

REPORT INFORMATION
  Report Type: 
  Country: None (occurrence: None)
  Receive Date: 20100917
  Receipt Date: 20090813
  Transmission Date: 20110219
  Serious: Yes (Other)
  Sender: FDA-Public Use
  Company Number: HQWYE205117JUL04

PATIENT
  Sex: Female
  Weight: 65.83 kg

DRUGS (10)
  1. PREMPRO [Suspect]
     Indication: OESTROGEN REPLACEMENT THERAPY
     Dosage: UNKNOWN
     Route: 048
     Dates: start: 19970203, end: 19980430
  2. PROVERA [Suspect]
     Indication: OESTROGEN REPLACEMENT THERAPY
     Dosage: 2.5MG
     Route: 048
     Dates: start: 19960725, end: 19961203
  3. ESTRACE [Suspect]
     Indication: OESTROGEN REPLACEMENT THERAPY
     Dosage: 2MG ^ON AND OFF^
     Dates: start: 19900101, end: 19950501
  4. DEPO-ESTRADIOL [Suspect]
  5. ESTROGENS ESTERIFIED/METHYLTESTOSTERONE [Suspect]
  6. OGEN [Suspect]
  7. DELESTROGEN [Suspect]
  8. DEPO-ESTRADIOL [Suspect]
  9. PREMARIN [Suspect]
     Indication: OESTROGEN REPLACEMENT THERAPY
     Dosage: UNKNOWN
     Route: 048
     Dates: start: 19820814, end: 19961203
  10. PROGESTERONE [Suspect]

REACTIONS (1)
  - BREAST CANCER [None]
